FAERS Safety Report 8593649-6 (Version None)
Quarter: 2012Q3

REPORT INFORMATION
  Report Type: 
  Country: None (occurrence: None)
  Receive Date: 20120814
  Receipt Date: 20120801
  Transmission Date: 20120928
  Serious: Yes (Other)
  Sender: FDA-Public Use
  Company Number: GB-FRI-1000037739

PATIENT
  Age: 40 Year
  Sex: Male
  Weight: 88 kg

DRUGS (1)
  1. ESCITALOPRAM [Suspect]
     Route: 048
     Dates: start: 20030601, end: 20030801

REACTIONS (5)
  - DEPRESSION [None]
  - DEPERSONALISATION [None]
  - DISSOCIATION [None]
  - ANXIETY [None]
  - DEREALISATION [None]
